FAERS Safety Report 7917269-9 (Version None)
Quarter: 2011Q4

REPORT INFORMATION
  Report Type: 
  Country: None (occurrence: None)
  Receive Date: 20111116
  Receipt Date: 20111101
  Transmission Date: 20120403
  Serious: Yes (Other)
  Sender: FDA-Public Use
  Company Number: PHEH2011US00443

PATIENT
  Sex: Female
  Weight: 58.7 kg

DRUGS (12)
  1. COMPAZINE [Concomitant]
  2. ZOFRAN [Concomitant]
  3. OXYCONTIN [Concomitant]
  4. EFFEXOR XR [Concomitant]
  5. ENOXAPARIN [Concomitant]
  6. COLACE [Concomitant]
  7. ZOMETA [Suspect]
     Dates: start: 20060301
  8. MORPHINE [Concomitant]
  9. NALOXONE [Concomitant]
  10. MYLICON [Concomitant]
  11. AMBIEN [Concomitant]
  12. FAMOTIDINE [Concomitant]

REACTIONS (20)
  - EXOSTOSIS [None]
  - SEASONAL ALLERGY [None]
  - OSTEOPENIA [None]
  - HAEMORRHAGE [None]
  - PAIN [None]
  - HOT FLUSH [None]
  - MIGRAINE [None]
  - HEPATIC CYST [None]
  - CORNEAL ABRASION [None]
  - INSOMNIA [None]
  - OVARIAN CYST [None]
  - OSTEONECROSIS OF JAW [None]
  - INJURY [None]
  - BLEPHARITIS [None]
  - RHEUMATOID ARTHRITIS [None]
  - ANXIETY [None]
  - DECREASED INTEREST [None]
  - ABDOMINAL PAIN [None]
  - DISABILITY [None]
  - SINUS BRADYCARDIA [None]
